FAERS Safety Report 20312465 (Version 1)
Quarter: 2022Q1

REPORT INFORMATION
  Report Type: Spontaneous
  Country: US (occurrence: None)
  Receive Date: 20220107
  Receipt Date: 20220107
  Transmission Date: 20220423
  Serious: No
  Sender: FDA-Public Use
  Company Number: None

PATIENT
  Age: 80 Year
  Sex: Female
  Weight: 69.4 kg

DRUGS (4)
  1. IBRANCE [Suspect]
     Active Substance: PALBOCICLIB
     Indication: Breast cancer
     Dosage: 75 MG DAILY ORAL?
     Route: 048
     Dates: start: 20210112
  2. LETROZOLE [Concomitant]
     Active Substance: LETROZOLE
  3. LOSARTAN [Concomitant]
     Active Substance: LOSARTAN
  4. ELIQUIS [Concomitant]
     Active Substance: APIXABAN

REACTIONS (2)
  - White blood cell count decreased [None]
  - Therapy interrupted [None]

NARRATIVE: CASE EVENT DATE: 20220107
